FAERS Safety Report 13167283 (Version 1)
Quarter: 2017Q1

REPORT INFORMATION
  Report Type: Other
  Country: GB (occurrence: GB)
  Receive Date: 20170131
  Receipt Date: 20170131
  Transmission Date: 20170428
  Serious: Yes (Other)
  Sender: FDA-Public Use
  Company Number: GB-GLENMARK PHARMACEUTICALS-2017GMK026090

PATIENT

DRUGS (5)
  1. ATORVASTATIN [Suspect]
     Active Substance: ATORVASTATIN
     Indication: TYPE IIA HYPERLIPIDAEMIA
     Dosage: UNK
     Route: 048
     Dates: start: 2012
  2. ACIPIMOX [Concomitant]
     Active Substance: ACIPIMOX
     Indication: TYPE IIA HYPERLIPIDAEMIA
     Dosage: 250 MG, TID
     Route: 065
  3. EZETIMIBE. [Suspect]
     Active Substance: EZETIMIBE
     Indication: TYPE IIA HYPERLIPIDAEMIA
     Dosage: 10 MG, UNK
     Route: 065
     Dates: start: 2012
  4. FENOFIBRATE. [Suspect]
     Active Substance: FENOFIBRATE
     Indication: TYPE IIA HYPERLIPIDAEMIA
     Dosage: 160 MG, UNK
     Route: 048
     Dates: start: 2015
  5. COLESEVELAM HYDROCHLORIDE [Suspect]
     Active Substance: COLESEVELAM HYDROCHLORIDE
     Indication: TYPE IIA HYPERLIPIDAEMIA
     Dosage: 3.75 MG, UNK
     Route: 065
     Dates: start: 2012

REACTIONS (3)
  - Blood cholesterol increased [Unknown]
  - Arteriosclerosis coronary artery [Unknown]
  - Low density lipoprotein increased [Unknown]

NARRATIVE: CASE EVENT DATE: 2015
